FAERS Safety Report 10621474 (Version 1)
Quarter: 2014Q4

REPORT INFORMATION
  Report Type: Spontaneous
  Country: US (occurrence: None)
  Receive Date: 20141126
  Receipt Date: 20141126
  Transmission Date: 20150529
  Serious: Yes (Hospitalization)
  Sender: FDA-Public Use
  Company Number: None

PATIENT
  Age: 41 Year
  Sex: Female
  Weight: 122.7 kg

DRUGS (3)
  1. CARBOPLATIN. [Suspect]
     Active Substance: CARBOPLATIN
  2. METFORMIN HYDROCHLORIDE. [Suspect]
     Active Substance: METFORMIN HYDROCHLORIDE
  3. TAXOL [Suspect]
     Active Substance: PACLITAXEL

REACTIONS (9)
  - Nausea [None]
  - Erythema [None]
  - Chills [None]
  - Blood sodium decreased [None]
  - Pyrexia [None]
  - Blood glucose increased [None]
  - Vomiting [None]
  - Abdominal pain [None]
  - Rash [None]

NARRATIVE: CASE EVENT DATE: 20141120
